FAERS Safety Report 4418085-5 (Version None)
Quarter: 2004Q3

REPORT INFORMATION
  Report Type: 
  Country: None (occurrence: None)
  Receive Date: 20040730
  Receipt Date: 20040722
  Transmission Date: 20050211
  Serious: Yes (Other)
  Sender: FDA-Public Use
  Company Number: AU-JNJFOC-20040604341

PATIENT
  Age: 3 Month
  Sex: Female

DRUGS (4)
  1. PROPULSID [Suspect]
     Indication: GASTROOESOPHAGEAL REFLUX DISEASE
     Dosage: DOSAGE: 1.5MG PER KILOGRAM  : ORAL
     Route: 048
     Dates: start: 20030218, end: 20030722
  2. PROPULSID [Suspect]
     Indication: GASTROOESOPHAGEAL REFLUX DISEASE
     Dosage: DOSAGE: 1.5MG PER KILOGRAM  : ORAL
     Route: 048
     Dates: start: 20031111, end: 20040315
  3. ZANTAC [Concomitant]
  4. MYLANTA [Concomitant]

REACTIONS (12)
  - ABDOMINAL PAIN UPPER [None]
  - ANDROGENS ABNORMAL [None]
  - BLOOD FOLLICLE STIMULATING HORMONE INCREASED [None]
  - GASTROOESOPHAGEAL REFLUX DISEASE [None]
  - HAEMATEMESIS [None]
  - HAIR GROWTH ABNORMAL [None]
  - IRRITABILITY [None]
  - MARKEDLY REDUCED DIETARY INTAKE [None]
  - OVARIAN CYST [None]
  - PAIN [None]
  - PORPHYRIA [None]
  - SCREAMING [None]
